FAERS Safety Report 17964102 (Version 2)
Quarter: 2020Q3

REPORT INFORMATION
  Report Type: Spontaneous
  Country: US (occurrence: US)
  Receive Date: 20200630
  Receipt Date: 20200916
  Transmission Date: 20201103
  Serious: Yes (Hospitalization, Other)
  Sender: FDA-Public Use
  Company Number: US-GILEAD-2020-0477454

PATIENT
  Age: 29 Year
  Sex: Male

DRUGS (2)
  1. VIREAD [Suspect]
     Active Substance: TENOFOVIR DISOPROXIL FUMARATE
     Indication: PRODUCT USED FOR UNKNOWN INDICATION
     Dosage: UNK
     Route: 048
     Dates: start: 201608, end: 201805
  2. TRUVADA [Suspect]
     Active Substance: EMTRICITABINE\TENOFOVIR DISOPROXIL FUMARATE
     Indication: PROPHYLAXIS AGAINST HIV INFECTION
     Dosage: UNK
     Route: 048
     Dates: start: 201608, end: 201805

REACTIONS (7)
  - Bone loss [Unknown]
  - Renal failure [Unknown]
  - Blood creatinine increased [Recovered/Resolved]
  - Chronic kidney disease [Unknown]
  - Fracture [Recovered/Resolved]
  - Bone density decreased [Unknown]
  - Osteonecrosis [Unknown]

NARRATIVE: CASE EVENT DATE: 20180129
